FAERS Safety Report 11623840 (Version 1)
Quarter: 2015Q4

REPORT INFORMATION
  Report Type: Spontaneous
  Country: US (occurrence: US)
  Receive Date: 20151013
  Receipt Date: 20151013
  Transmission Date: 20160304
  Serious: No
  Sender: FDA-Public Use
  Company Number: US-JNJFOC-20150416223

PATIENT
  Age: 31 Year
  Sex: Female
  Weight: 124.74 kg

DRUGS (2)
  1. CHILDRENS TYLENOL [Suspect]
     Active Substance: ACETAMINOPHEN
     Indication: PAIN
     Dosage: EVERY 4-6 HOURS
     Route: 048
     Dates: start: 20150330
  2. MULTIVITAMINS [Concomitant]
     Active Substance: VITAMINS
     Indication: MALABSORPTION
     Route: 065

REACTIONS (2)
  - Drug prescribing error [Unknown]
  - Wrong drug administered [Unknown]

NARRATIVE: CASE EVENT DATE: 20150330
